FAERS Safety Report 25609797 (Version 2)
Quarter: 2025Q3

REPORT INFORMATION
  Report Type: Spontaneous
  Country: US (occurrence: US)
  Receive Date: 20250728
  Receipt Date: 20250730
  Transmission Date: 20251020
  Serious: Yes (Life-Threatening, Hospitalization)
  Sender: GLENMARK
  Company Number: US-MLMSERVICE-20250710-PI572705-00120-1

PATIENT
  Age: 64 Year
  Sex: Female

DRUGS (1)
  1. DICLOFENAC SODIUM [Suspect]
     Active Substance: DICLOFENAC SODIUM
     Indication: Back pain
     Route: 048

REACTIONS (2)
  - Stress cardiomyopathy [Unknown]
  - Drug hypersensitivity [Unknown]
